FAERS Safety Report 5222853-X (Version None)
Quarter: 2007Q1

REPORT INFORMATION
  Report Type: 
  Country: None (occurrence: None)
  Receive Date: 20070129
  Receipt Date: 20070118
  Transmission Date: 20070707
  Serious: Yes (Death)
  Sender: FDA-Public Use
  Company Number: SE-GLAXOSMITHKLINE-B0455886A

PATIENT
  Age: 33 Year
  Sex: Female

DRUGS (3)
  1. BETAPRED [Suspect]
     Indication: IRITIS
     Dosage: 2.5MG PER DAY
     Route: 048
  2. ZANTAC [Suspect]
     Indication: GASTRITIS
     Dosage: 600MG PER DAY
     Route: 048
     Dates: start: 20051107
  3. REDUCTIL [Suspect]
     Indication: OBESITY
     Dosage: 10MG PER DAY
     Route: 048
     Dates: start: 20051213

REACTIONS (2)
  - ADRENAL CORTICAL INSUFFICIENCY [None]
  - SUDDEN DEATH [None]
